FAERS Safety Report 7243395-6 (Version None)
Quarter: 2011Q1

REPORT INFORMATION
  Report Type: 
  Country: None (occurrence: None)
  Receive Date: 20110125
  Receipt Date: 20110111
  Transmission Date: 20110831
  Serious: Yes (Hospitalization, Other)
  Sender: FDA-Public Use
  Company Number: FR-ELI_LILLY_AND_COMPANY-FR201012000845

PATIENT
  Age: 29 Year
  Sex: Male
  Weight: 73 kg

DRUGS (4)
  1. GEMZAR [Suspect]
     Indication: TESTIS CANCER
     Dosage: 600 MG/M2, D1, D1=D22
     Route: 042
     Dates: start: 20101119, end: 20101119
  2. GEMZAR [Suspect]
     Dosage: 600 MG/M2, CYCLE 1 DAY 8
     Route: 042
     Dates: start: 20101126, end: 20101126
  3. OXALIPLATIN [Concomitant]
     Indication: TESTIS CANCER
     Dosage: 80 MG/M2, UNK
     Route: 042
     Dates: start: 20101119, end: 20101119
  4. TAXOTERE [Concomitant]
     Dosage: 70 MG/M2, UNK
     Route: 042
     Dates: start: 20101119, end: 20101119

REACTIONS (7)
  - JAUNDICE [None]
  - NEUTROPENIA [None]
  - HYPERBILIRUBINAEMIA [None]
  - ABDOMINAL PAIN [None]
  - ANAEMIA [None]
  - OFF LABEL USE [None]
  - THROMBOCYTOPENIA [None]
